FAERS Safety Report 25921070 (Version 1)
Quarter: 2025Q4

REPORT INFORMATION
  Report Type: Spontaneous
  Country: US (occurrence: US)
  Receive Date: 20251014
  Receipt Date: 20251014
  Transmission Date: 20260118
  Serious: Yes (Other)
  Sender: ALEXION PHARMACEUTICALS
  Company Number: US-AstraZeneca-CH-00969306A

PATIENT
  Sex: Female

DRUGS (1)
  1. LYNPARZA [Suspect]
     Active Substance: OLAPARIB
     Dosage: 300 MILLIGRAM, BID
     Route: 065
     Dates: start: 20250209

REACTIONS (7)
  - Wound [Unknown]
  - Rash macular [Unknown]
  - Breast cancer [Unknown]
  - Arthropod bite [Unknown]
  - Fatigue [Unknown]
  - Diarrhoea [Unknown]
  - Visual impairment [Unknown]
